FAERS Safety Report 12570528 (Version 2)
Quarter: 2016Q3

REPORT INFORMATION
  Report Type: Spontaneous
  Country: DK (occurrence: DK)
  Receive Date: 20160719
  Receipt Date: 20160728
  Transmission Date: 20161109
  Serious: Yes (Life-Threatening, Other)
  Sender: FDA-Public Use
  Company Number: DK-NOVOPROD-500343

PATIENT
  Age: 71 Year
  Sex: Female

DRUGS (1)
  1. VAGIFEM [Suspect]
     Active Substance: ESTRADIOL
     Indication: VULVOVAGINAL PRURITUS
     Dosage: 1 TAB, QD (STARTED 4 YEARS AGO)
     Route: 067
     Dates: end: 201511

REACTIONS (3)
  - Product use issue [Unknown]
  - Asthma [Not Recovered/Not Resolved]
  - Biliary cancer metastatic [Not Recovered/Not Resolved]

NARRATIVE: CASE EVENT DATE: 20151101
